FAERS Safety Report 6054575-X (Version None)
Quarter: 2009Q1

REPORT INFORMATION
  Report Type: 
  Country: None (occurrence: None)
  Receive Date: 20090127
  Receipt Date: 20090123
  Transmission Date: 20090719
  Serious: Yes (Death, Other)
  Sender: FDA-Public Use
  Company Number: PHHY2008DE30502

PATIENT
  Sex: Female

DRUGS (3)
  1. EXJADE [Suspect]
     Indication: HAEMOSIDEROSIS
     Dosage: 1500 MG, QD
     Route: 048
     Dates: start: 20080912, end: 20080925
  2. PANTOZOL [Concomitant]
     Indication: PROPHYLAXIS AGAINST GASTROINTESTINAL ULCER
     Dosage: UNK
     Route: 048
  3. DECORTIN-H [Concomitant]
     Indication: HAEMOLYSIS
     Dosage: UNK
     Route: 048
     Dates: start: 20080301, end: 20080926

REACTIONS (4)
  - ESCHERICHIA INFECTION [None]
  - IMMUNODEFICIENCY [None]
  - RASH [None]
  - SEPSIS [None]
